FAERS Safety Report 8048032-9 (Version None)
Quarter: 2012Q1

REPORT INFORMATION
  Report Type: 
  Country: None (occurrence: None)
  Receive Date: 20120117
  Receipt Date: 20120109
  Transmission Date: 20120608
  Serious: Yes (Hospitalization)
  Sender: FDA-Public Use
  Company Number: US-AMGEN-USASP2012001466

PATIENT
  Age: 53 Year
  Sex: Female

DRUGS (2)
  1. ENBREL [Suspect]
     Indication: MULTIPLE EPIPHYSEAL DYSPLASIA
     Dosage: 50 MG, QWK
     Dates: start: 20041001
  2. METHOTREXATE [Concomitant]
     Dosage: UNK

REACTIONS (11)
  - ROAD TRAFFIC ACCIDENT [None]
  - ARTHRITIS INFECTIVE [None]
  - STRESS [None]
  - UPPER LIMB FRACTURE [None]
  - HIP ARTHROPLASTY [None]
  - HYPERSENSITIVITY [None]
  - WRIST FRACTURE [None]
  - ARTHRALGIA [None]
  - TOOTH FRACTURE [None]
  - JOINT DISLOCATION [None]
  - ARTHRITIS FUNGAL [None]
